FAERS Safety Report 19711894 (Version 1)
Quarter: 2021Q3

REPORT INFORMATION
  Report Type: Spontaneous
  Country: US (occurrence: US)
  Receive Date: 20210817
  Receipt Date: 20210817
  Transmission Date: 20211014
  Serious: No
  Sender: FDA-Public Use
  Company Number: US-LUPIN PHARMACEUTICALS INC.-2021-14528

PATIENT
  Age: 68 Year
  Sex: Male
  Weight: 97.51 kg

DRUGS (1)
  1. FENOFIBRATE TABLETS USP 145 MG [Suspect]
     Active Substance: FENOFIBRATE
     Indication: BLOOD CHOLESTEROL INCREASED
     Dosage: 1 DOSAGE FORM, QD IN THE MORNING
     Route: 048
     Dates: start: 20210726

REACTIONS (5)
  - Product taste abnormal [Unknown]
  - Poor quality product administered [Unknown]
  - No adverse event [Unknown]
  - Product solubility abnormal [Unknown]
  - Product coating issue [Unknown]
